FAERS Safety Report 21990359 (Version 1)
Quarter: 2023Q1

REPORT INFORMATION
  Report Type: Spontaneous
  Country: CN (occurrence: CN)
  Receive Date: 20230214
  Receipt Date: 20230214
  Transmission Date: 20230418
  Serious: Yes (Other)
  Sender: FDA-Public Use
  Company Number: None

PATIENT
  Age: 54 Year
  Sex: Female
  Weight: 50 kg

DRUGS (6)
  1. CYCLOPHOSPHAMIDE [Suspect]
     Active Substance: CYCLOPHOSPHAMIDE
     Indication: Invasive breast carcinoma
     Dosage: 0.88 G, QD, DILUTED WITH 500 ML OF 0.9% SODIUM CHLORIDE, AT 13:00 HOURS, FOURTH ADJUVANT CHEMOTHERAP
     Route: 041
     Dates: start: 20230119, end: 20230119
  2. CYCLOPHOSPHAMIDE [Suspect]
     Active Substance: CYCLOPHOSPHAMIDE
     Indication: Breast cancer stage II
  3. SODIUM CHLORIDE [Suspect]
     Active Substance: SODIUM CHLORIDE
     Indication: Medication dilution
     Dosage: 500 ML, QD (CONCENTRATION:0.9%), USED TO DILUTE 70 MG PIRARUBICIN HYDROCHLORIDE, AT 13:00 HOURS, FOU
     Route: 041
     Dates: start: 20230119, end: 20230119
  4. PIRARUBICIN HYDROCHLORIDE [Suspect]
     Active Substance: PIRARUBICIN HYDROCHLORIDE
     Indication: Invasive breast carcinoma
     Dosage: 70 MG, QD, DILUTED WITH 500 ML OF 0.9% SODIUM CHLORIDE, AT 13:00 HOURS, FOURTH ADJUVANT CHEMOTHERAPY
     Route: 041
     Dates: start: 20230119, end: 20230119
  5. PIRARUBICIN HYDROCHLORIDE [Suspect]
     Active Substance: PIRARUBICIN HYDROCHLORIDE
     Indication: Breast cancer stage II
  6. SODIUM CHLORIDE [Suspect]
     Active Substance: SODIUM CHLORIDE
     Indication: Vehicle solution use
     Dosage: 500 ML, QD, (CONCENTRATION 0.9%) USED TO DILUTE 0.88 G CYCLOPHOSPHAMIDE, AT 13:00 HOURS, FOURTH ADJU
     Route: 041
     Dates: start: 20230119, end: 20230119

REACTIONS (2)
  - White blood cell count decreased [Recovering/Resolving]
  - Neutrophil count decreased [Recovering/Resolving]

NARRATIVE: CASE EVENT DATE: 20230127
